FAERS Safety Report 5524881-3 (Version None)
Quarter: 2007Q4

REPORT INFORMATION
  Report Type: 
  Country: None (occurrence: None)
  Receive Date: 20071119
  Receipt Date: 20071107
  Transmission Date: 20080405
  Serious: Yes (Hospitalization)
  Sender: FDA-Public Use
  Company Number: 2007-167104-NL

PATIENT
  Age: 58 Year
  Sex: Female

DRUGS (8)
  1. MIRTAZAPINE [Suspect]
     Indication: DEPRESSION
     Dosage: 60 MG, ORAL
     Route: 048
     Dates: end: 20061226
  2. AMPHOTERICIN B [Concomitant]
  3. NYSTATIN [Concomitant]
  4. ZOPICLONE [Concomitant]
  5. PROPRANOLOL [Concomitant]
  6. LEVOTHYROXINE SODIUM [Concomitant]
  7. ALPRAZOLAN [Concomitant]
  8. TRIFOLIUM PRATENSE [Concomitant]

REACTIONS (2)
  - DRUG INTERACTION [None]
  - SEROTONIN SYNDROME [None]
